FAERS Safety Report 8579514-9 (Version None)
Quarter: 2012Q3

REPORT INFORMATION
  Report Type: 
  Country: None (occurrence: None)
  Receive Date: 20120808
  Receipt Date: 20120802
  Transmission Date: 20120928
  Serious: Yes (Hospitalization)
  Sender: FDA-Public Use
  Company Number: IT-GLAXOSMITHKLINE-B0821247A

PATIENT
  Sex: Female

DRUGS (6)
  1. ALKERAN [Suspect]
     Indication: MULTIPLE MYELOMA
     Dosage: 24MG PER DAY
     Route: 048
     Dates: start: 20091118, end: 20091220
  2. ALLOPURINOL [Concomitant]
  3. ASPIRIN [Concomitant]
  4. THALIDOMIDE [Suspect]
     Indication: MULTIPLE MYELOMA
     Dosage: 2100MG PER DAY
     Route: 048
     Dates: start: 20091118, end: 20091220
  5. LANSOPRAZOLE [Concomitant]
  6. PREDNISONE TAB [Concomitant]

REACTIONS (5)
  - STAPHYLOCOCCAL INFECTION [None]
  - FEBRILE NEUTROPENIA [None]
  - WHITE BLOOD CELL COUNT DECREASED [None]
  - BACTERIAL SEPSIS [None]
  - URTICARIA [None]
